FAERS Safety Report 5366236-0 (Version None)
Quarter: 2007Q2

REPORT INFORMATION
  Report Type: 
  Country: None (occurrence: None)
  Receive Date: 20070619
  Receipt Date: 20070611
  Transmission Date: 20071010
  Serious: Yes (Hospitalization)
  Sender: FDA-Public Use
  Company Number: 2007BI010329

PATIENT
  Age: 70 Year
  Sex: Female

DRUGS (8)
  1. AVONEX [Suspect]
     Indication: MULTIPLE SCLEROSIS
     Dosage: 30 UG; QW; IM
     Route: 030
     Dates: start: 19980901
  2. DILANTIN [Concomitant]
  3. VALPROIC ACID [Concomitant]
  4. PREMARIN [Concomitant]
  5. SYNTHROID [Concomitant]
  6. ACIPHEX [Concomitant]
  7. LOPRESSOR [Concomitant]
  8. ZOCOR [Concomitant]

REACTIONS (4)
  - BALANCE DISORDER [None]
  - DRUG TOXICITY [None]
  - INCORRECT DOSE ADMINISTERED [None]
  - TREMOR [None]
